FAERS Safety Report 8373005-6 (Version None)
Quarter: 2012Q2

REPORT INFORMATION
  Report Type: 
  Country: None (occurrence: None)
  Receive Date: 20120521
  Receipt Date: 20111207
  Transmission Date: 20120825
  Serious: No
  Sender: FDA-Public Use
  Company Number: US-ASTRAZENECA-2011SE78728

PATIENT
  Age: 87 Year
  Sex: Female

DRUGS (5)
  1. PRILOSEC OTC [Suspect]
     Route: 048
     Dates: start: 20111202, end: 20111207
  2. VITAMIN TAB [Concomitant]
     Dosage: UNKNOWN
  3. AMLODIPINE BESYLATE [Concomitant]
     Indication: HYPERTENSION
     Dosage: UNKNOWN
  4. LISINOPRIL [Concomitant]
     Dosage: UNKNOWN
  5. SYNTHROID [Concomitant]
     Dosage: UNKNOWN

REACTIONS (3)
  - DIARRHOEA [None]
  - HEADACHE [None]
  - PROCTALGIA [None]
